FAERS Safety Report 20411481 (Version 1)
Quarter: 2022Q1

REPORT INFORMATION
  Report Type: Spontaneous
  Country: TR (occurrence: TR)
  Receive Date: 20220201
  Receipt Date: 20220201
  Transmission Date: 20220423
  Serious: Yes (Disabling)
  Sender: FDA-Public Use
  Company Number: TR-BAYER-2022A016337

PATIENT
  Age: 56 Year
  Sex: Female
  Weight: 70 kg

DRUGS (1)
  1. ULTRAVIST [Suspect]
     Active Substance: IOPROMIDE
     Indication: Magnetic resonance imaging
     Dosage: UNK
     Route: 042
     Dates: start: 20220118, end: 20220118

REACTIONS (10)
  - Speech disorder [Recovering/Resolving]
  - Amnesia [Recovering/Resolving]
  - Dizziness [Recovered/Resolved]
  - Eye pain [Recovered/Resolved]
  - Vision blurred [Recovered/Resolved]
  - Depressed level of consciousness [None]
  - Somnolence [None]
  - Loss of consciousness [None]
  - Chest pain [None]
  - Headache [None]

NARRATIVE: CASE EVENT DATE: 20220118
